FAERS Safety Report 9190526 (Version 3)
Quarter: 2013Q2

REPORT INFORMATION
  Report Type: Spontaneous
  Country: US (occurrence: US)
  Receive Date: 20130326
  Receipt Date: 20130527
  Transmission Date: 20140414
  Serious: Yes (Other)
  Sender: FDA-Public Use
  Company Number: US-PFIZER INC-2013094671

PATIENT
  Age: 87 Year
  Sex: Female

DRUGS (1)
  1. PREMARIN [Suspect]
     Dosage: 0.625 MG, UNK
     Dates: start: 1999

REACTIONS (6)
  - Deep vein thrombosis [Unknown]
  - Hip fracture [Unknown]
  - Arthritis [Unknown]
  - Malaise [Unknown]
  - Movement disorder [Unknown]
  - Cartilage injury [Unknown]
